FAERS Safety Report 14764985 (Version 1)
Quarter: 2018Q2

REPORT INFORMATION
  Report Type: Report from Study
  Country: CA (occurrence: CA)
  Receive Date: 20180416
  Receipt Date: 20180416
  Transmission Date: 20180711
  Serious: Yes (Death, Other)
  Sender: FDA-Public Use
  Company Number: CA-GLAXOSMITHKLINE-CA2017GSK163375

PATIENT
  Age: 79 Year
  Sex: Male

DRUGS (2)
  1. MEPOLIZUMAB [Suspect]
     Active Substance: MEPOLIZUMAB
     Indication: ASTHMA
     Dosage: 100 MG, MONTHLY
     Route: 058
  2. MEPOLIZUMAB [Suspect]
     Active Substance: MEPOLIZUMAB
     Dosage: 100 MG, Z, MONTHLY
     Route: 058

REACTIONS (6)
  - Somnolence [Unknown]
  - Dyspnoea [Not Recovered/Not Resolved]
  - Hypertension [Unknown]
  - Death [Fatal]
  - Headache [Unknown]
  - Vital functions abnormal [Unknown]

NARRATIVE: CASE EVENT DATE: 20171023
